FAERS Safety Report 9397089 (Version 1)
Quarter: 2013Q3

REPORT INFORMATION
  Report Type: Spontaneous
  Country: US (occurrence: US)
  Receive Date: 20130712
  Receipt Date: 20130712
  Transmission Date: 20140515
  Serious: No
  Sender: FDA-Public Use
  Company Number: US-PFIZER INC-2013204400

PATIENT
  Age: 45 Year
  Sex: Female
  Weight: 81.63 kg

DRUGS (2)
  1. PRISTIQ [Suspect]
     Indication: ANXIETY
     Dosage: 50MG DAILY
     Dates: start: 2008
  2. PRISTIQ [Suspect]
     Indication: DEPRESSION

REACTIONS (2)
  - Memory impairment [Unknown]
  - Dizziness [Unknown]
